FAERS Safety Report 6978720-4 (Version None)
Quarter: 2010Q3

REPORT INFORMATION
  Report Type: 
  Country: None (occurrence: None)
  Receive Date: 20100913
  Receipt Date: 20100903
  Transmission Date: 20110219
  Serious: Yes (Hospitalization)
  Sender: FDA-Public Use
  Company Number: B0673288A

PATIENT
  Sex: Female

DRUGS (1)
  1. VALTREX [Suspect]
     Indication: HERPES ZOSTER
     Route: 048
     Dates: start: 20100830, end: 20100902

REACTIONS (4)
  - DIZZINESS [None]
  - DYSLALIA [None]
  - HYPOAESTHESIA ORAL [None]
  - MALAISE [None]
